FAERS Safety Report 21966814 (Version 2)
Quarter: 2023Q1

REPORT INFORMATION
  Report Type: Report from Study
  Country: IT (occurrence: IT)
  Receive Date: 20230208
  Receipt Date: 20230214
  Transmission Date: 20230418
  Serious: Yes (Death, Hospitalization, Other)
  Sender: FDA-Public Use
  Company Number: IT-Stemline Therapeutics, Inc.-2023ST000102

PATIENT
  Age: 79 Year
  Sex: Female

DRUGS (3)
  1. ELZONRIS [Suspect]
     Active Substance: TAGRAXOFUSP-ERZS
     Indication: Product used for unknown indication
     Dosage: 840 MCG/KG, DAY 1-DAY 5
     Route: 042
     Dates: start: 20230116, end: 20230121
  2. ELZONRIS [Suspect]
     Active Substance: TAGRAXOFUSP-ERZS
     Indication: Blastic plasmacytoid dendritic cell neoplasia
  3. LEVOFLOXACIN [Concomitant]
     Active Substance: LEVOFLOXACIN
     Indication: Infection prophylaxis
     Route: 065
     Dates: start: 20230118, end: 20230123

REACTIONS (2)
  - Cardiac arrest [Fatal]
  - Hypervolaemia [Unknown]

NARRATIVE: CASE EVENT DATE: 20230122
